FAERS Safety Report 24164078 (Version 1)
Quarter: 2024Q3

REPORT INFORMATION
  Report Type: Spontaneous
  Country: CN (occurrence: CN)
  Receive Date: 20240801
  Receipt Date: 20240801
  Transmission Date: 20241017
  Serious: Yes (Hospitalization)
  Sender: BIO-THERA SOLUTIONS
  Company Number: CN-Bio-Thera Solutions, Ltd.-2159774

PATIENT
  Age: 61 Year
  Sex: Female
  Weight: 58 kg

DRUGS (3)
  1. AVZIVI [Suspect]
     Active Substance: BEVACIZUMAB-TNJN
     Indication: Ovarian cancer
     Route: 041
     Dates: start: 20240628, end: 20240628
  2. CARBOPLATIN [Suspect]
     Active Substance: CARBOPLATIN
     Route: 041
     Dates: start: 20240627, end: 20240627
  3. PACLITAXEL [Suspect]
     Active Substance: PACLITAXEL
     Route: 041
     Dates: start: 20240627, end: 20240627

REACTIONS (2)
  - Platelet count decreased [Not Recovered/Not Resolved]
  - Hepatic function abnormal [Not Recovered/Not Resolved]

NARRATIVE: CASE EVENT DATE: 20240704
